FAERS Safety Report 9030389 (Version 1)
Quarter: 2013Q1

REPORT INFORMATION
  Report Type: Spontaneous
  Country: US (occurrence: US)
  Receive Date: 20130122
  Receipt Date: 20130122
  Transmission Date: 20140127
  Serious: Yes (Hospitalization)
  Sender: FDA-Public Use
  Company Number: US-B.I. PHARMACEUTICALS,INC./RIDGEFIELD-2013-BI-01030BP

PATIENT
  Sex: Male

DRUGS (8)
  1. SPIRIVA [Suspect]
     Indication: CHRONIC OBSTRUCTIVE PULMONARY DISEASE
     Dosage: 18 MCG
     Route: 055
     Dates: start: 2009
  2. BENADRYL [Concomitant]
     Route: 048
  3. ASPIRIN [Concomitant]
     Route: 048
  4. SPIRONOLACTONE [Concomitant]
     Route: 048
  5. COLACE [Concomitant]
     Route: 048
  6. METOPROLOL [Concomitant]
     Route: 048
  7. ALBUTEROL [Concomitant]
     Route: 055
  8. CENTRUM SILVER [Concomitant]
     Route: 048

REACTIONS (5)
  - Cardiac failure congestive [Not Recovered/Not Resolved]
  - Pneumonia [Recovered/Resolved]
  - Parkinson^s disease [Not Recovered/Not Resolved]
  - Memory impairment [Not Recovered/Not Resolved]
  - Constipation [Recovered/Resolved]
